FAERS Safety Report 10173434 (Version 1)
Quarter: 2014Q2

REPORT INFORMATION
  Report Type: Spontaneous
  Country: US (occurrence: None)
  Receive Date: 20140415
  Receipt Date: 20140415
  Transmission Date: 20141212
  Serious: Yes (Hospitalization)
  Sender: FDA-Public Use
  Company Number: ALL1-2013-07988

PATIENT
  Age: 58 Year
  Sex: Female
  Weight: 45.4 kg

DRUGS (5)
  1. LIALDA [Suspect]
     Indication: COLITIS
     Route: 048
     Dates: start: 2011, end: 201106
  2. MAXAIR /00587603/ (PIRBUTEROL ACETATE) [Concomitant]
  3. ATORVASTATIN (ATORVASTATIN) [Concomitant]
  4. CELEXA /00582602/ (CITALOPRAM HYDROBROMIDE) [Concomitant]
  5. ALVESCO (CICLESONIDE) [Concomitant]

REACTIONS (3)
  - Diarrhoea [None]
  - Drug prescribing error [None]
  - Drug dose omission [None]
